FAERS Safety Report 20775964 (Version 1)
Quarter: 2022Q2

REPORT INFORMATION
  Report Type: Spontaneous
  Country: DK (occurrence: DK)
  Receive Date: 20220502
  Receipt Date: 20220502
  Transmission Date: 20220720
  Serious: Yes (Hospitalization)
  Sender: FDA-Public Use
  Company Number: None

PATIENT
  Age: 25 Year
  Sex: Female

DRUGS (5)
  1. CYCLOSPORINE [Suspect]
     Active Substance: CYCLOSPORINE
     Indication: Susac^s syndrome
     Dosage: 300 MG, QD (NO OF SERARATE DOSAGES UNKNOWN. INCREASED FROM 200 MG TIL 300 MG ON 20 DEC 2017 STRENGTH
     Route: 048
     Dates: start: 20171128
  2. PREDNISOLONE [Suspect]
     Active Substance: PREDNISOLONE
     Indication: Susac^s syndrome
     Dosage: 40 MG, QD (DOSE BETWEEN 37.5-50 MG. DOSE DECREASED TO 40 MG APPROX 27 FEB STRENGTH: UNKNOWN)
     Route: 048
     Dates: start: 201705, end: 201705
  3. MABTHERA [Suspect]
     Active Substance: RITUXIMAB
     Indication: Susac^s syndrome
     Dosage: DOSAGE: UNKNOWN DOSE TWICE A YEAR. STRENGTH: 1400 MG
     Route: 058
     Dates: start: 20170911
  4. CELLCEPT [Suspect]
     Active Substance: MYCOPHENOLATE MOFETIL
     Indication: Susac^s syndrome
     Dosage: 2 G, QD (DOSE INCREASED IN JUN AND JUL. DOSE REDUCED FROM 3 G TO 2 G ON 03 NOV. STRENGTH: UNKNOWN)
     Route: 048
     Dates: start: 201705, end: 20171128
  5. PREDNISOLONE [Suspect]
     Active Substance: PREDNISOLONE
     Indication: Susac^s syndrome
     Dosage: UNK, (DOSAGE: HIGH, INTERVAL UNKNOWN STRENGTH: UNKNOWN)
     Route: 042
     Dates: start: 201705, end: 201705

REACTIONS (2)
  - Dyspnoea [Unknown]
  - Pneumocystis jirovecii pneumonia [Recovered/Resolved with Sequelae]

NARRATIVE: CASE EVENT DATE: 20180301
